FAERS Safety Report 7949240-5 (Version None)
Quarter: 2011Q4

REPORT INFORMATION
  Report Type: 
  Country: None (occurrence: None)
  Receive Date: 20111129
  Receipt Date: 20111129
  Transmission Date: 20120403
  Serious: No
  Sender: FDA-Public Use
  Company Number: None

PATIENT
  Sex: Female
  Weight: 75.7 kg

DRUGS (2)
  1. ELOXATIN [Suspect]
     Dosage: 150 MG
     Dates: end: 20111115
  2. FLUOROURACIL [Suspect]
     Dosage: 2751 MG
     Dates: end: 20111116

REACTIONS (3)
  - ASPARTATE AMINOTRANSFERASE INCREASED [None]
  - LOBAR PNEUMONIA [None]
  - METABOLIC ENCEPHALOPATHY [None]
